FAERS Safety Report 16232895 (Version 1)
Quarter: 2019Q2

REPORT INFORMATION
  Report Type: Spontaneous
  Country: US (occurrence: US)
  Receive Date: 20190423
  Receipt Date: 20190423
  Transmission Date: 20190711
  Serious: Yes (Hospitalization, Other)
  Sender: FDA-Public Use
  Company Number: None

PATIENT
  Age: 78 Year
  Sex: Female

DRUGS (6)
  1. TRAMADOL TABLET 50MG [Concomitant]
     Dates: start: 20190121
  2. AMLODIPINE [Concomitant]
     Active Substance: AMLODIPINE BESYLATE
     Dates: start: 20190410
  3. ALBURTEROL AER HFA [Concomitant]
  4. DICYCLOMINE TABLET 20MG [Concomitant]
     Dates: start: 20190410
  5. HUMIRA [Suspect]
     Active Substance: ADALIMUMAB
     Indication: VULVOVAGINAL INFLAMMATION
     Dosage: ?          OTHER FREQUENCY:EVERY 2 WEEKS;?
     Route: 058
     Dates: start: 20180218, end: 20190301
  6. BUDESONIDE CAPSULES 3MG [Concomitant]
     Dates: start: 20190307

REACTIONS (2)
  - Hypertension [None]
  - Adverse drug reaction [None]

NARRATIVE: CASE EVENT DATE: 20190301
